FAERS Safety Report 5312006-9 (Version None)
Quarter: 2007Q2

REPORT INFORMATION
  Report Type: 
  Country: None (occurrence: None)
  Receive Date: 20070430
  Receipt Date: 20060807
  Transmission Date: 20071010
  Serious: No
  Sender: FDA-Public Use
  Company Number: 2006UW13548

PATIENT
  Age: 49 Year
  Sex: Female
  Weight: 55.8 kg

DRUGS (6)
  1. NEXIUM [Suspect]
     Indication: GASTROOESOPHAGEAL REFLUX DISEASE
     Route: 048
  2. PROTONIX [Suspect]
  3. FLUTICASONE PROPIONATE [Concomitant]
  4. ASCORBIC ACID [Concomitant]
  5. VITAMIN CAP [Concomitant]
  6. TUMS [Concomitant]

REACTIONS (2)
  - HYPERSENSITIVITY [None]
  - VAGINAL BURNING SENSATION [None]
